FAERS Safety Report 7797809-3 (Version None)
Quarter: 2011Q4

REPORT INFORMATION
  Report Type: 
  Country: None (occurrence: None)
  Receive Date: 20111005
  Receipt Date: 20111002
  Transmission Date: 20120403
  Serious: No
  Sender: FDA-Public Use
  Company Number: US-PFIZER INC-2011235074

PATIENT
  Sex: Female

DRUGS (2)
  1. CHANTIX [Suspect]
     Dosage: UNK, DAILY
     Route: 048
     Dates: start: 20110901, end: 20110901
  2. CHANTIX [Suspect]
     Dosage: UNK, 2X/DAY
     Route: 048
     Dates: end: 20110901

REACTIONS (1)
  - HEADACHE [None]
